FAERS Safety Report 12831307 (Version 2)
Quarter: 2016Q4

REPORT INFORMATION
  Report Type: Report from Study
  Country: AR (occurrence: AR)
  Receive Date: 20161008
  Receipt Date: 20161012
  Transmission Date: 20170207
  Serious: Yes (Hospitalization)
  Sender: FDA-Public Use
  Company Number: AR-B.I. PHARMACEUTICALS,INC./RIDGEFIELD-2016-BI-56069BI

PATIENT
  Age: 67 Year
  Sex: Male
  Weight: 78 kg

DRUGS (5)
  1. LAXIS [Concomitant]
     Indication: HYPERTENSION
     Route: 048
     Dates: start: 201010
  2. TERLOC [Concomitant]
     Indication: HYPERTENSION
     Route: 048
     Dates: start: 2010
  3. INSULIN GLARGINE [Concomitant]
     Active Substance: INSULIN GLARGINE
     Indication: TYPE 2 DIABETES MELLITUS
     Route: 058
     Dates: start: 20151009, end: 20160709
  4. LIPIFEN [Concomitant]
     Indication: DYSLIPIDAEMIA
     Route: 048
     Dates: start: 2005, end: 20160709
  5. BLINDED LINAGLIPTIN [Suspect]
     Active Substance: LINAGLIPTIN
     Indication: DIABETES MELLITUS
     Route: 048
     Dates: start: 20160225, end: 20160601

REACTIONS (1)
  - Chronic kidney disease [Not Recovered/Not Resolved]

NARRATIVE: CASE EVENT DATE: 20160621
